FAERS Safety Report 5802335-4 (Version None)
Quarter: 2008Q3

REPORT INFORMATION
  Report Type: 
  Country: None (occurrence: None)
  Receive Date: 20080707
  Receipt Date: 20080618
  Transmission Date: 20090109
  Serious: No
  Sender: FDA-Public Use
  Company Number: US-BOEHRINGER INGELHEIM GMBH, GERMANY-2008-BP-08558BP

PATIENT
  Age: 65 Year
  Sex: Female

DRUGS (4)
  1. SPIRIVA [Suspect]
     Indication: CHRONIC OBSTRUCTIVE PULMONARY DISEASE
     Route: 055
     Dates: start: 20080418, end: 20080520
  2. FLONASE [Concomitant]
     Dates: start: 20060506
  3. ASMAWEX [Concomitant]
     Dates: start: 20060223
  4. SINGULAIR [Concomitant]
     Dates: start: 20060223

REACTIONS (3)
  - DYSPHONIA [None]
  - OROPHARYNGEAL PAIN [None]
  - THROAT IRRITATION [None]
